FAERS Safety Report 9116745 (Version 1)
Quarter: 2013Q1

REPORT INFORMATION
  Report Type: Spontaneous
  Country: US (occurrence: US)
  Receive Date: 20130225
  Receipt Date: 20130225
  Transmission Date: 20140127
  Serious: Yes (Hospitalization, Other)
  Sender: FDA-Public Use
  Company Number: US-PFIZER INC-2013067235

PATIENT
  Age: 91 Year
  Sex: Female

DRUGS (1)
  1. NORVASC [Suspect]
     Indication: HYPERTENSION
     Dosage: 5 MG, 1X/DAY
     Route: 048
     Dates: start: 201302

REACTIONS (7)
  - Viral infection [Unknown]
  - Pyrexia [Unknown]
  - Abasia [Unknown]
  - Aphagia [Unknown]
  - Fatigue [Unknown]
  - Somnolence [Unknown]
  - Asthenia [Unknown]
